FAERS Safety Report 23234352 (Version 1)
Quarter: 2023Q4

REPORT INFORMATION
  Report Type: Spontaneous
  Country: US (occurrence: US)
  Receive Date: 20231128
  Receipt Date: 20231128
  Transmission Date: 20240109
  Serious: Yes (Death, Other)
  Sender: FDA-Public Use
  Company Number: US-SANDOZ-SDZ2023US059048

PATIENT
  Age: 38 Year
  Sex: Female

DRUGS (3)
  1. HEPARIN [Suspect]
     Active Substance: HEPARIN SODIUM
     Indication: Arteriosclerosis
     Dosage: UNK
     Route: 065
  2. HEPARIN [Suspect]
     Active Substance: HEPARIN SODIUM
     Indication: Stenosis
  3. EPOPROSTENOL [Concomitant]
     Active Substance: EPOPROSTENOL
     Indication: Raynaud^s phenomenon
     Dosage: UNK
     Route: 065

REACTIONS (1)
  - Haemorrhage intracranial [Fatal]
